FAERS Safety Report 14162466 (Version 2)
Quarter: 2017Q4

REPORT INFORMATION
  Report Type: Report from Study
  Country: None (occurrence: ES)
  Receive Date: 20171106
  Receipt Date: 20171110
  Transmission Date: 20180321
  Serious: Yes (Death, Hospitalization)
  Sender: FDA-Public Use
  Company Number: ES-ABBVIE-17K-144-2152236-00

PATIENT
  Age: 92 Year
  Sex: Male

DRUGS (2)
  1. AEROSOL SPITZNER [Concomitant]
     Indication: PRODUCT USED FOR UNKNOWN INDICATION
     Route: 048
  2. DUODOPA [Suspect]
     Active Substance: CARBIDOPA\LEVODOPA
     Indication: PARKINSON^S DISEASE
     Route: 050
     Dates: start: 20101110

REACTIONS (2)
  - Respiratory tract infection [Fatal]
  - Respiratory distress [Recovering/Resolving]

NARRATIVE: CASE EVENT DATE: 20171101
